FAERS Safety Report 22609762 (Version 1)
Quarter: 2023Q2

REPORT INFORMATION
  Report Type: Spontaneous
  Country: US (occurrence: US)
  Receive Date: 20230616
  Receipt Date: 20230616
  Transmission Date: 20230722
  Serious: Yes (Other)
  Sender: FDA-Public Use
  Company Number: US-BEH-2023159897

PATIENT
  Sex: Female

DRUGS (1)
  1. HIZENTRA [Suspect]
     Active Substance: HUMAN IMMUNOGLOBULIN G
     Indication: Hypogammaglobulinaemia
     Dosage: 4 GRAM, QMT
     Route: 058
     Dates: start: 20230330

REACTIONS (3)
  - Rheumatoid arthritis [Unknown]
  - Fibromyalgia [Unknown]
  - Fatigue [Unknown]
